FAERS Safety Report 9379220 (Version 1)
Quarter: 2013Q3

REPORT INFORMATION
  Report Type: Spontaneous
  Country: ES (occurrence: ES)
  Receive Date: 20130702
  Receipt Date: 20130702
  Transmission Date: 20140515
  Serious: Yes (Death)
  Sender: FDA-Public Use
  Company Number: ES-ASTELLAS-2013EU005573

PATIENT
  Age: 71 Year
  Sex: Male
  Weight: 65 kg

DRUGS (1)
  1. MYCAMINE [Suspect]
     Indication: CANDIDA INFECTION
     Dosage: UNK
     Route: 042

REACTIONS (1)
  - Death [Fatal]
